FAERS Safety Report 16788729 (Version 1)
Quarter: 2019Q3

REPORT INFORMATION
  Report Type: Spontaneous
  Country: RO (occurrence: RO)
  Receive Date: 20190910
  Receipt Date: 20190910
  Transmission Date: 20191005
  Serious: Yes (Life-Threatening)
  Sender: FDA-Public Use
  Company Number: RO-ACCORD-154163

PATIENT
  Age: 67 Year
  Sex: Female

DRUGS (6)
  1. OSETRON [Concomitant]
     Active Substance: ONDANSETRON HYDROCHLORIDE
     Indication: PREMEDICATION
     Dosage: 16 MG
     Route: 042
     Dates: start: 20190724, end: 20190724
  2. DEXAMETHASONE. [Concomitant]
     Active Substance: DEXAMETHASONE
     Indication: PREMEDICATION
     Dosage: 16 MG
     Route: 042
     Dates: start: 20190724, end: 20190724
  3. PACLITAXEL ACCORD [Suspect]
     Active Substance: PACLITAXEL
     Indication: CERVIX CARCINOMA
     Dosage: STRENGTH 6, 250 MG
     Route: 042
     Dates: start: 20190724, end: 20190724
  4. METHYLPREDNISOLONE. [Concomitant]
     Active Substance: METHYLPREDNISOLONE
     Indication: PREMEDICATION
     Dosage: 125 MG, LEMOD-SOLU
     Route: 042
     Dates: start: 20190724, end: 20190724
  5. CLARITINE [Concomitant]
     Active Substance: LORATADINE
     Indication: PREMEDICATION
     Dosage: 10 MG
     Route: 048
     Dates: start: 20190724, end: 20190724
  6. ARNETIN [Concomitant]
     Indication: PREMEDICATION
     Dosage: 50 MG
     Route: 042
     Dates: start: 20190724, end: 20190724

REACTIONS (5)
  - Anaphylactic shock [Recovered/Resolved]
  - Oxygen saturation decreased [Recovered/Resolved]
  - Off label use [Unknown]
  - Erythema [Recovered/Resolved]
  - Blood pressure fluctuation [Recovered/Resolved]

NARRATIVE: CASE EVENT DATE: 20190724
